FAERS Safety Report 24995159 (Version 1)
Quarter: 2025Q1

REPORT INFORMATION
  Report Type: Spontaneous
  Country: JP (occurrence: JP)
  Receive Date: 20250221
  Receipt Date: 20250221
  Transmission Date: 20250408
  Serious: Yes (Life-Threatening, Other)
  Sender: GILEAD
  Company Number: JP-GILEAD-2025-0704441

PATIENT
  Age: 26 Year
  Sex: Female

DRUGS (4)
  1. VEKLURY [Suspect]
     Active Substance: REMDESIVIR
     Indication: COVID-19
     Route: 065
  2. DEXAMETHASONE [Concomitant]
     Active Substance: DEXAMETHASONE
     Indication: COVID-19
     Route: 048
  3. PIPERACILLIN SODIUM\TAZOBACTAM SODIUM [Concomitant]
     Active Substance: PIPERACILLIN SODIUM\TAZOBACTAM SODIUM
     Indication: Pneumonia bacterial
  4. ENSITRELVIR FUMARIC ACID [Concomitant]
     Indication: COVID-19
     Route: 048

REACTIONS (3)
  - Systemic inflammatory response syndrome [Unknown]
  - Disseminated intravascular coagulation [Unknown]
  - Lemierre syndrome [Unknown]
